FAERS Safety Report 22642594 (Version 1)
Quarter: 2023Q2

REPORT INFORMATION
  Report Type: Spontaneous
  Country: ES (occurrence: ES)
  Receive Date: 20230627
  Receipt Date: 20230627
  Transmission Date: 20230722
  Serious: Yes (Other)
  Sender: FDA-Public Use
  Company Number: ES-AEMPS-1381917

PATIENT
  Age: 24 Year
  Sex: Female

DRUGS (2)
  1. AMOXICILLIN\CLAVULANIC ACID [Suspect]
     Active Substance: AMOXICILLIN\CLAVULANIC ACID
     Indication: Tonsillitis
     Dosage: 1 DOSAGE FORM, 3 TIMES A DAY
     Route: 048
     Dates: start: 20180930, end: 20181009
  2. IBUPROFEN [Concomitant]
     Active Substance: IBUPROFEN
     Indication: Tonsillitis
     Dosage: UNK
     Route: 048
     Dates: start: 20180930

REACTIONS (2)
  - Dyspnoea [Recovered/Resolved]
  - Rash erythematous [Recovered/Resolved]

NARRATIVE: CASE EVENT DATE: 20181009
